FAERS Safety Report 9303810 (Version 2)
Quarter: 2013Q2

REPORT INFORMATION
  Report Type: Spontaneous
  Country: JP (occurrence: JP)
  Receive Date: 20130522
  Receipt Date: 20130529
  Transmission Date: 20140414
  Serious: Yes (Hospitalization)
  Sender: FDA-Public Use
  Company Number: JP-GLAXOSMITHKLINE-B0891846A

PATIENT
  Age: 64 Year
  Sex: Female

DRUGS (6)
  1. LAMICTAL [Suspect]
     Indication: BIPOLAR DISORDER
     Dosage: 25MG PER DAY
     Route: 048
     Dates: start: 20130415, end: 20130509
  2. RISPERDAL [Concomitant]
     Dosage: 1MG PER DAY
     Route: 048
  3. BENZALIN [Concomitant]
     Dosage: 10MG PER DAY
     Route: 048
  4. HIBERNA [Concomitant]
     Dosage: 25MG PER DAY
     Route: 048
  5. ATARAX [Concomitant]
     Dosage: 10MG PER DAY
     Route: 048
  6. ROZEREM [Concomitant]
     Route: 048

REACTIONS (6)
  - Drug eruption [Recovering/Resolving]
  - Insomnia [Unknown]
  - Anxiety [Unknown]
  - Rash [Unknown]
  - Pigmentation disorder [Unknown]
  - Overdose [Unknown]
